FAERS Safety Report 13150147 (Version 6)
Quarter: 2019Q2

REPORT INFORMATION
  Report Type: Report from Study
  Country: US (occurrence: US)
  Receive Date: 20170125
  Receipt Date: 20190619
  Transmission Date: 20190711
  Serious: No
  Sender: FDA-Public Use
  Company Number: PHHY2016US032086

PATIENT
  Age: 38 Year
  Sex: Female

DRUGS (4)
  1. METHYLPHENIDATE. [Concomitant]
     Active Substance: METHYLPHENIDATE
     Indication: FATIGUE
     Dosage: UNK
     Route: 065
     Dates: start: 20180108
  2. ZONISAMIDE. [Concomitant]
     Active Substance: ZONISAMIDE
     Indication: MIGRAINE
     Dosage: UNK
     Route: 065
     Dates: start: 20180108
  3. SOLU-MEDROL [Concomitant]
     Active Substance: METHYLPREDNISOLONE SODIUM SUCCINATE
     Indication: OPTIC NERVE DISORDER
     Dosage: UNK
     Route: 065
     Dates: start: 20120713, end: 20120715
  4. GILENYA [Suspect]
     Active Substance: FINGOLIMOD HYDROCHLORIDE
     Indication: MULTIPLE SCLEROSIS
     Dosage: UNK, QD
     Route: 048

REACTIONS (11)
  - Lentigo [Unknown]
  - Colon adenoma [Unknown]
  - Vitamin D decreased [Recovered/Resolved]
  - Seborrhoeic keratosis [Unknown]
  - Haemangioma of skin [Unknown]
  - Anal incontinence [Unknown]
  - Constipation [Recovered/Resolved]
  - Headache [Unknown]
  - Defaecation urgency [Recovered/Resolved]
  - Melanocytic naevus [Unknown]
  - Gastrointestinal hypermotility [Recovered/Resolved]

NARRATIVE: CASE EVENT DATE: 20150601
